FAERS Safety Report 21979738 (Version 1)
Quarter: 2023Q1

REPORT INFORMATION
  Report Type: Spontaneous
  Country: US (occurrence: US)
  Receive Date: 20230210
  Receipt Date: 20230210
  Transmission Date: 20230417
  Serious: Yes (Other)
  Sender: FDA-Public Use
  Company Number: US-HALEON-USCH2023GSK005631

PATIENT

DRUGS (2)
  1. ACETAMINOPHEN [Suspect]
     Active Substance: ACETAMINOPHEN
     Indication: Product used for unknown indication
     Dosage: UNK
     Route: 064
  2. IBUPROFEN [Suspect]
     Active Substance: IBUPROFEN
     Indication: Product used for unknown indication
     Dosage: UNK
     Route: 064

REACTIONS (13)
  - Foetal hypokinesia [Unknown]
  - Hypotonia neonatal [Unknown]
  - Baseline foetal heart rate variability disorder [Recovered/Resolved]
  - Hypoxic-ischaemic encephalopathy [Unknown]
  - Therapeutic hypothermia [Unknown]
  - Newborn persistent pulmonary hypertension [Unknown]
  - Hepatic function abnormal [Recovering/Resolving]
  - Acute kidney injury [Unknown]
  - Hypoglycaemia [Unknown]
  - Seizure [Unknown]
  - Intraventricular haemorrhage neonatal [Unknown]
  - Respiratory failure [Recovering/Resolving]
  - Pallor [Unknown]
